FAERS Safety Report 5049807-0 (Version None)
Quarter: 2006Q3

REPORT INFORMATION
  Report Type: 
  Country: None (occurrence: None)
  Receive Date: 20060707
  Receipt Date: 20060627
  Transmission Date: 20061208
  Serious: Yes (Other)
  Sender: FDA-Public Use
  Company Number: CHPA2006US06352

PATIENT
  Age: 40 Year
  Sex: Female
  Weight: 56.7 kg

DRUGS (11)
  1. WALMART/EQUATE (NCH)(NICOTINE) TRANS-THERAPEUTIC-SYSTEM [Suspect]
     Indication: SMOKING CESSATION THERAPY
     Dosage: 21 MG, QD, TRANSDERMAL
     Route: 062
     Dates: start: 20060618, end: 20060620
  2. WALMART/EQUATE (NCH)(NICOTINE) TRANS-THERAPEUTIC-SYSTEM [Suspect]
     Indication: SMOKING CESSATION THERAPY
     Dosage: 21 MG, QD, TRANSDERMAL
     Route: 062
     Dates: start: 20060626, end: 20060626
  3. TIAZAC [Concomitant]
  4. SYNTHROID [Concomitant]
  5. ZOLOFT [Concomitant]
  6. DEMULEN (ETHINYLESTRADIOL, ETYNODIOL DIACETATE) [Concomitant]
  7. ENTOCORT (BUDESONIDE) [Concomitant]
  8. HALCION [Concomitant]
  9. XANAX [Concomitant]
  10. FIORICET [Concomitant]
  11. AMERGE [Concomitant]

REACTIONS (4)
  - BLOOD PRESSURE INCREASED [None]
  - HEART RATE INCREASED [None]
  - MOTOR DYSFUNCTION [None]
  - TREMOR [None]
